FAERS Safety Report 15211851 (Version 4)
Quarter: 2022Q1

REPORT INFORMATION
  Report Type: Spontaneous
  Country: DK (occurrence: DK)
  Receive Date: 20180729
  Receipt Date: 20220105
  Transmission Date: 20220424
  Serious: Yes (Death, Life-Threatening, Hospitalization, Other)
  Sender: FDA-Public Use
  Company Number: PHHY2013DK176435

PATIENT
  Age: 80 Year
  Sex: Female

DRUGS (1)
  1. METHOTREXATE [Suspect]
     Active Substance: METHOTREXATE
     Indication: Rheumatoid arthritis
     Dosage: 10 MG, QD
     Route: 065

REACTIONS (6)
  - Pancytopenia [Fatal]
  - Septic shock [Fatal]
  - Toxicity to various agents [Fatal]
  - Product administration error [Fatal]
  - Inappropriate schedule of product administration [Fatal]
  - Off label use [Unknown]

NARRATIVE: CASE EVENT DATE: 20160101
